FAERS Safety Report 20633195 (Version 2)
Quarter: 2022Q2

REPORT INFORMATION
  Report Type: Spontaneous
  Country: US (occurrence: US)
  Receive Date: 20220324
  Receipt Date: 20220413
  Transmission Date: 20220721
  Serious: Yes (Other)
  Sender: FDA-Public Use
  Company Number: US-TEVA-2022-US-2019004

PATIENT
  Age: 15 Year
  Sex: Male

DRUGS (6)
  1. DIAZEPAM [Suspect]
     Active Substance: DIAZEPAM
     Indication: Genital pain
     Route: 065
  2. CELECOXIB [Suspect]
     Active Substance: CELECOXIB
     Indication: Genital pain
     Route: 065
  3. GABAPENTIN [Suspect]
     Active Substance: GABAPENTIN
     Indication: Genital pain
     Route: 065
  4. PAROXETINE [Suspect]
     Active Substance: PAROXETINE
     Indication: Major depression
     Route: 065
     Dates: start: 2017
  5. MELOXICAM [Suspect]
     Active Substance: MELOXICAM
     Indication: Genital pain
     Route: 065
  6. CARBAMAZEPINE [Concomitant]
     Active Substance: CARBAMAZEPINE
     Indication: Genital pain
     Route: 065

REACTIONS (3)
  - Ejaculation delayed [Unknown]
  - Constipation [Unknown]
  - Drug ineffective [Unknown]

NARRATIVE: CASE EVENT DATE: 20170101
